FAERS Safety Report 16056502 (Version 1)
Quarter: 2019Q2

REPORT INFORMATION
  Report Type: Spontaneous
  Country: US (occurrence: US)
  Receive Date: 20190309
  Receipt Date: 20190309
  Transmission Date: 20190711
  Serious: No
  Sender: FDA-Public Use
  Company Number: None

PATIENT
  Age: 23 Year
  Sex: Female
  Weight: 83.25 kg

DRUGS (11)
  1. EMGALITY [Suspect]
     Active Substance: GALCANEZUMAB-GNLM
     Indication: MIGRAINE
     Dosage: ?          QUANTITY:1 INJECTION(S);OTHER FREQUENCY:MONTHLY;OTHER ROUTE:SUBCUTANEOUSLY?
     Dates: start: 20190208, end: 20190208
  2. CRYSELLE [Concomitant]
     Active Substance: ETHINYL ESTRADIOL\NORGESTREL
  3. PRAZOSIN. [Concomitant]
     Active Substance: PRAZOSIN
  4. MELATONIN [Concomitant]
     Active Substance: MELATONIN
  5. EMGALITY [Suspect]
     Active Substance: GALCANEZUMAB-GNLM
     Indication: MIGRAINE
     Dosage: ?          QUANTITY:1 INJECTION(S);OTHER FREQUENCY:MONTHLY;OTHER ROUTE:SUBCUTANEOUSLY?
     Dates: start: 20190208, end: 20190208
  6. CYMBALTA [Concomitant]
     Active Substance: DULOXETINE HYDROCHLORIDE
  7. MAGNESIUM GLYCINATE [Concomitant]
     Active Substance: MAGNESIUM GLYCINATE
  8. ARMOUR THYROID [Concomitant]
     Active Substance: THYROID, PORCINE
  9. COQ10 [Concomitant]
     Active Substance: UBIDECARENONE
  10. SINGULAIR [Concomitant]
     Active Substance: MONTELUKAST SODIUM
  11. LEVOCETIRIZINE [Concomitant]
     Active Substance: LEVOCETIRIZINE

REACTIONS (6)
  - Serotonin syndrome [None]
  - Injection site pain [None]
  - Migraine [None]
  - Blood pressure increased [None]
  - Injection site rash [None]
  - Injection site swelling [None]

NARRATIVE: CASE EVENT DATE: 20190208
